FAERS Safety Report 25250119 (Version 1)
Quarter: 2025Q2

REPORT INFORMATION
  Report Type: Spontaneous
  Country: US (occurrence: None)
  Receive Date: 20250429
  Receipt Date: 20250429
  Transmission Date: 20250717
  Serious: No
  Sender: FDA-CTU
  Company Number: None

PATIENT
  Age: 39 Year
  Sex: Female

DRUGS (1)
  1. MENTHOL [Suspect]
     Active Substance: MENTHOL
     Indication: Myalgia
     Route: 061
     Dates: start: 20250429, end: 20250429

REACTIONS (1)
  - Application site pain [None]

NARRATIVE: CASE EVENT DATE: 20250429
